FAERS Safety Report 15075853 (Version 1)
Quarter: 2018Q2

REPORT INFORMATION
  Report Type: Spontaneous
  Country: US (occurrence: US)
  Receive Date: 20180607
  Receipt Date: 20180607
  Transmission Date: 20180711
  Serious: Yes (Hospitalization)
  Sender: FDA-Public Use
  Company Number: None

PATIENT
  Sex: Male

DRUGS (12)
  1. AMLODIPINE [Concomitant]
     Active Substance: AMLODIPINE BESYLATE
  2. ALLOPURINOL. [Concomitant]
     Active Substance: ALLOPURINOL
  3. CARDURA [Concomitant]
     Active Substance: DOXAZOSIN MESYLATE
  4. LASIX [Concomitant]
     Active Substance: FUROSEMIDE
  5. DOXAZOSIN [Concomitant]
     Active Substance: DOXAZOSIN\DOXAZOSIN MESYLATE
  6. FINASTERIDE. [Concomitant]
     Active Substance: FINASTERIDE
  7. VITMAIN D [Concomitant]
  8. CLOPIDOGREL [Concomitant]
     Active Substance: CLOPIDOGREL BISULFATE
  9. SERTRALINE [Concomitant]
     Active Substance: SERTRALINE HYDROCHLORIDE
  10. BOSULIF [Suspect]
     Active Substance: BOSUTINIB MONOHYDRATE
     Indication: NEOPLASM MALIGNANT
     Route: 048
     Dates: start: 20141215
  11. EPOGEN [Concomitant]
     Active Substance: ERYTHROPOIETIN
  12. CRESTOR [Concomitant]
     Active Substance: ROSUVASTATIN CALCIUM

REACTIONS (1)
  - Dehydration [None]
